FAERS Safety Report 7388751-0 (Version None)
Quarter: 2011Q2

REPORT INFORMATION
  Report Type: 
  Country: None (occurrence: None)
  Receive Date: 20110401
  Receipt Date: 20110323
  Transmission Date: 20111010
  Serious: Yes (Hospitalization)
  Sender: FDA-Public Use
  Company Number: JP-JNJFOC-20110310572

PATIENT
  Sex: Male
  Weight: 65 kg

DRUGS (12)
  1. NORVIR [Concomitant]
     Indication: HIV INFECTION
     Route: 048
  2. TRUVADA [Concomitant]
     Route: 048
  3. PREZISTA [Suspect]
     Indication: HIV INFECTION
     Route: 048
  4. EPIVIR [Concomitant]
     Indication: HIV INFECTION
     Route: 048
  5. ZERIT [Concomitant]
     Indication: HIV INFECTION
     Route: 048
  6. STOCRIN [Concomitant]
     Indication: HIV INFECTION
     Route: 048
  7. ISENTRESS [Concomitant]
     Indication: HIV INFECTION
     Route: 048
  8. TRUVADA [Concomitant]
     Indication: HIV INFECTION
     Route: 048
  9. LOPEMIN [Concomitant]
     Indication: DIARRHOEA
     Route: 048
  10. METHOXYPHENAMINE HYDROCHLORIDE [Concomitant]
     Indication: DRUG RASH WITH EOSINOPHILIA AND SYSTEMIC SYMPTOMS
     Route: 048
  11. CELESTAMINE TAB [Concomitant]
     Indication: RASH
     Route: 048
  12. ALLEGRA [Concomitant]
     Indication: RASH
     Route: 048

REACTIONS (4)
  - HEPATIC FUNCTION ABNORMAL [None]
  - RASH [None]
  - PLATELET COUNT DECREASED [None]
  - SALMONELLA SEPSIS [None]
